FAERS Safety Report 11420620 (Version 2)
Quarter: 2015Q3

REPORT INFORMATION
  Report Type: Spontaneous
  Country: BG (occurrence: BG)
  Receive Date: 20150826
  Receipt Date: 20150909
  Transmission Date: 20151125
  Serious: Yes (Death, Hospitalization)
  Sender: FDA-Public Use
  Company Number: BG-ASTRAZENECA-2015SE80576

PATIENT
  Age: 87 Year
  Sex: Female

DRUGS (6)
  1. BISOGAMMA [Concomitant]
  2. BRILIQUE [Suspect]
     Active Substance: TICAGRELOR
     Indication: ACUTE CORONARY SYNDROME
     Route: 048
  3. DIAPREL [Concomitant]
     Active Substance: GLICLAZIDE
  4. PREDUCTAL [Concomitant]
     Active Substance: TRIMETAZIDINE DIHYDROCHLORIDE
  5. ISODINITE [Concomitant]
  6. METFOGAMMA [Concomitant]

REACTIONS (5)
  - Diabetic ketoacidosis [Fatal]
  - Off label use [Unknown]
  - Multi-organ failure [Fatal]
  - Ischaemic stroke [Fatal]
  - Coma [Fatal]
